FAERS Safety Report 9780722 (Version 4)
Quarter: 2014Q2

REPORT INFORMATION
  Report Type: Report from Study
  Country: CA (occurrence: CA)
  Receive Date: 20131224
  Receipt Date: 20140418
  Transmission Date: 20141212
  Serious: Yes (Other)
  Sender: FDA-Public Use
  Company Number: CA-JNJFOC-20131118639

PATIENT
  Age: 55 Year
  Sex: Male
  Weight: 97 kg

DRUGS (3)
  1. REMICADE [Suspect]
     Indication: ANKYLOSING SPONDYLITIS
     Route: 042
     Dates: start: 20060127
  2. REMICADE [Suspect]
     Indication: ANKYLOSING SPONDYLITIS
     Route: 042
     Dates: start: 20131008, end: 20131008
  3. BUSCOPAN [Concomitant]
     Route: 065

REACTIONS (3)
  - Prostate cancer [Recovered/Resolved]
  - Post procedural infection [Unknown]
  - Arthritis [Unknown]
